FAERS Safety Report 6033974-6 (Version None)
Quarter: 2009Q1

REPORT INFORMATION
  Report Type: 
  Country: None (occurrence: None)
  Receive Date: 20090112
  Receipt Date: 20090108
  Transmission Date: 20090719
  Serious: Yes (Death, Other)
  Sender: FDA-Public Use
  Company Number: PHHY2008JP32569

PATIENT
  Sex: Male
  Weight: 54 kg

DRUGS (9)
  1. DIOVAN [Suspect]
     Indication: HYPERTENSION
     Dosage: 80 MG, QD
     Route: 048
     Dates: start: 20081205
  2. ASPIRIN [Concomitant]
     Indication: ATRIAL FIBRILLATION
     Dosage: 100 MG, UNK
     Route: 048
     Dates: start: 20070120
  3. HERBESSER ^DELTA^ [Concomitant]
     Dosage: 100 MG, UNK
     Route: 048
     Dates: start: 20081205
  4. BEPRICOR [Concomitant]
     Indication: ATRIAL FIBRILLATION
     Dosage: 200 MG, UNK
     Route: 048
     Dates: start: 20080124
  5. DICHLOTRIDE [Concomitant]
     Indication: HYPERTENSION
     Dosage: 12.5 MG, UNK
     Route: 048
     Dates: start: 20081205
  6. URSO 250 [Concomitant]
     Indication: HEPATIC NEOPLASM MALIGNANT
     Dosage: 300 MG
     Route: 048
     Dates: start: 20080604
  7. KALIMATE [Concomitant]
     Indication: HYPERKALAEMIA
     Dosage: 10 MG
     Route: 048
     Dates: start: 20080617
  8. WARFARIN POTASSIUM [Concomitant]
     Indication: ATRIAL FIBRILLATION
     Dosage: 1.5 MG
     Route: 048
     Dates: start: 20070120
  9. OLMETEC [Concomitant]
     Indication: BLOOD PRESSURE INADEQUATELY CONTROLLED
     Dosage: 20 MG DAILY
     Dates: start: 20080912, end: 20081205

REACTIONS (6)
  - ARRHYTHMIA [None]
  - BLOOD PRESSURE INCREASED [None]
  - BRAIN NATRIURETIC PEPTIDE INCREASED [None]
  - CARDIO-RESPIRATORY ARREST [None]
  - INTERNATIONAL NORMALISED RATIO INCREASED [None]
  - SUDDEN DEATH [None]
